FAERS Safety Report 9473266 (Version 1)
Quarter: 2013Q3

REPORT INFORMATION
  Report Type: Spontaneous
  Country: US (occurrence: US)
  Receive Date: 20130823
  Receipt Date: 20130823
  Transmission Date: 20140515
  Serious: No
  Sender: FDA-Public Use
  Company Number: US-BRISTOL-MYERS SQUIBB COMPANY-18822049

PATIENT
  Sex: Male

DRUGS (1)
  1. SPRYCEL [Suspect]
     Dates: start: 201210

REACTIONS (1)
  - Diplopia [Not Recovered/Not Resolved]
